FAERS Safety Report 4372075-X (Version None)
Quarter: 2004Q2

REPORT INFORMATION
  Report Type: 
  Country: None (occurrence: None)
  Receive Date: 20040603
  Receipt Date: 20040603
  Transmission Date: 20050107
  Serious: Yes (Other)
  Sender: FDA-Public Use
  Company Number: None

PATIENT
  Sex: Male
  Weight: 87.0906 kg

DRUGS (4)
  1. PRINZIDE [Suspect]
     Indication: HYPERTENSION
     Dosage: 20/12.5 QD ORAL
     Route: 048
     Dates: start: 20040310, end: 20040420
  2. LIPITOR [Concomitant]
  3. ASPIRIN [Concomitant]
  4. VIT C [Concomitant]

REACTIONS (1)
  - HICCUPS [None]
